FAERS Safety Report 9098116 (Version 1)
Quarter: 2013Q1

REPORT INFORMATION
  Report Type: Spontaneous
  Country: US (occurrence: US)
  Receive Date: 20130213
  Receipt Date: 20130213
  Transmission Date: 20140127
  Serious: Yes (Death)
  Sender: FDA-Public Use
  Company Number: PHEH2013US003549

PATIENT
  Sex: Male

DRUGS (8)
  1. RECLAST [Suspect]
     Indication: OSTEOPOROSIS
     Dosage: ANNUALLY
     Route: 042
     Dates: start: 200902
  2. RECLAST [Suspect]
     Dosage: ANNUALLY
     Route: 042
     Dates: start: 201204
  3. ADVACAL [Concomitant]
  4. OMEPRAZOLE [Concomitant]
     Route: 048
  5. SIMVASTAN [Concomitant]
     Route: 048
  6. SYNTHROID [Concomitant]
     Route: 048
  7. DUONEB [Concomitant]
  8. DOXAZOSIN [Concomitant]
     Route: 048

REACTIONS (1)
  - Death [Fatal]
